FAERS Safety Report 10497728 (Version 1)
Quarter: 2014Q4

REPORT INFORMATION
  Report Type: Spontaneous
  Country: CH (occurrence: CH)
  Receive Date: 20141006
  Receipt Date: 20141006
  Transmission Date: 20150528
  Serious: Yes (Hospitalization)
  Sender: FDA-Public Use
  Company Number: PHHY2014CH129812

PATIENT
  Age: 83 Year
  Sex: Female

DRUGS (8)
  1. RIVAROXABAN [Suspect]
     Active Substance: RIVAROXABAN
     Indication: THROMBOSIS PROPHYLAXIS
     Dosage: 10 MG, QD
  2. CEFAZOLIN [Concomitant]
     Active Substance: CEFAZOLIN
     Dosage: 2 G, ONCE/SINGLE
     Route: 042
  3. METAMIZOLE [Concomitant]
     Active Substance: METAMIZOLE
     Dosage: 500 MG, UNK
  4. DALTEPARIN [Concomitant]
     Active Substance: DALTEPARIN
     Indication: THROMBOSIS PROPHYLAXIS
  5. ACETAMINOPHEN. [Concomitant]
     Active Substance: ACETAMINOPHEN
     Indication: ANALGESIC THERAPY
     Dosage: 4 G, QD
  6. DICLOFENAC [Suspect]
     Active Substance: DICLOFENAC
     Indication: ANALGESIC THERAPY
     Dosage: 150 MG, QD
  7. DICLOFENAC [Suspect]
     Active Substance: DICLOFENAC
     Dosage: UNK
  8. METAMIZOLE [Concomitant]
     Active Substance: METAMIZOLE
     Indication: ANALGESIC THERAPY
     Dosage: 1000 MG, UNK

REACTIONS (8)
  - Cholelithiasis [Recovered/Resolved]
  - Jaundice [Recovered/Resolved]
  - Drug-induced liver injury [Recovered/Resolved]
  - Pruritus [Recovered/Resolved]
  - Fatigue [Recovered/Resolved]
  - Nausea [Recovered/Resolved]
  - Cholestasis [Recovered/Resolved]
  - Abnormal loss of weight [Recovered/Resolved]
